FAERS Safety Report 9888166 (Version 2)
Quarter: 2014Q1

REPORT INFORMATION
  Report Type: Spontaneous
  Country: IT (occurrence: None)
  Receive Date: 20140207
  Receipt Date: 20140218
  Transmission Date: 20141002
  Serious: Yes (Hospitalization)
  Sender: FDA-Public Use
  Company Number: DSM-2014-00093

PATIENT
  Age: 67 Year
  Sex: Male

DRUGS (4)
  1. OLPRESS [Suspect]
     Indication: HYPERTENSION
     Route: 048
     Dates: start: 20130101
  2. LOBIVON [Suspect]
     Indication: HYPERTENSION
     Route: 048
     Dates: start: 20130101
  3. ALFUZOSINA PFIZER [Suspect]
     Indication: HYPERTENSION
     Route: 048
     Dates: start: 20131109
  4. CARDIOASPIRIN (ACETYSALICYLIC ACID) (100 MILLIGRAM TABLET) (ACETYLSALICYLIC ACID) [Concomitant]

REACTIONS (2)
  - Syncope [None]
  - Atrial fibrillation [None]
